FAERS Safety Report 4445252-7 (Version None)
Quarter: 2004Q3

REPORT INFORMATION
  Report Type: 
  Country: None (occurrence: None)
  Receive Date: 20040907
  Receipt Date: 20040823
  Transmission Date: 20050211
  Serious: No
  Sender: FDA-Public Use
  Company Number: 04P-167-0271530-00

PATIENT

DRUGS (1)
  1. HUMIRA [Suspect]
     Indication: RHEUMATOID ARTHRITIS
     Dosage: 40 MG, 1 IN 2 WK, SUBCUTANEOUS
     Route: 058

REACTIONS (6)
  - GINGIVAL SWELLING [None]
  - MOUTH ULCERATION [None]
  - NAUSEA [None]
  - OEDEMA PERIPHERAL [None]
  - RASH PRURITIC [None]
  - SWELLING FACE [None]
